FAERS Safety Report 7770633-3 (Version None)
Quarter: 2011Q3

REPORT INFORMATION
  Report Type: 
  Country: None (occurrence: None)
  Receive Date: 20110922
  Receipt Date: 20110920
  Transmission Date: 20111222
  Serious: Yes (Other)
  Sender: FDA-Public Use
  Company Number: PHHY2011NL38762

PATIENT
  Sex: Female

DRUGS (5)
  1. ZOMETA [Suspect]
     Dosage: 4MG/5ML ONCE PER 42 DAYS
     Dates: start: 20110920
  2. ZOMETA [Suspect]
     Dosage: 4MG/5ML ONCE PER 42 DAYS
     Dates: start: 20110826
  3. ZOMETA [Suspect]
     Dosage: 4MG/5ML ONCE PER 42 DAYS
     Dates: start: 20110322
  4. ZOMETA [Suspect]
     Dosage: 4MG/5ML ONCE PER 42 DAYS
     Dates: start: 20110705
  5. ZOMETA [Suspect]
     Indication: BREAST CANCER METASTATIC
     Dosage: 4MG/5ML ONCE PER 42 DAYS
     Dates: start: 20090818

REACTIONS (4)
  - GINGIVITIS [None]
  - OSTEITIS [None]
  - TOOTHACHE [None]
  - PAIN IN JAW [None]
